FAERS Safety Report 18245966 (Version 1)
Quarter: 2020Q3

REPORT INFORMATION
  Report Type: Spontaneous
  Country: US (occurrence: US)
  Receive Date: 20200909
  Receipt Date: 20200909
  Transmission Date: 20201103
  Serious: Yes (Death, Other)
  Sender: FDA-Public Use
  Company Number: US-ROCHE-2667983

PATIENT
  Age: 47 Year
  Sex: Female

DRUGS (4)
  1. XELODA [Suspect]
     Active Substance: CAPECITABINE
     Dosage: STRENGTH 500 MG
     Route: 048
     Dates: start: 20200829
  2. XELODA [Suspect]
     Active Substance: CAPECITABINE
     Dosage: STRENGTH: 150 MG
     Route: 048
     Dates: start: 202007
  3. TEMOZOLOMIDE. [Concomitant]
     Active Substance: TEMOZOLOMIDE
  4. XELODA [Suspect]
     Active Substance: CAPECITABINE
     Indication: PRODUCT USED FOR UNKNOWN INDICATION
     Dosage: FREQUENCY : OTHER, ONGOING YES, (STRENGTH: 500 MG)
     Route: 048
     Dates: start: 202007

REACTIONS (2)
  - Death [Fatal]
  - Haemoptysis [Unknown]

NARRATIVE: CASE EVENT DATE: 20200827
